FAERS Safety Report 9803151 (Version 1)
Quarter: 2014Q1

REPORT INFORMATION
  Report Type: Spontaneous
  Country: US (occurrence: US)
  Receive Date: 20140108
  Receipt Date: 20140108
  Transmission Date: 20141002
  Serious: No
  Sender: FDA-Public Use
  Company Number: US-PFIZER INC-2014001250

PATIENT
  Age: 52 Year
  Sex: Female
  Weight: 71.2 kg

DRUGS (3)
  1. LYRICA [Suspect]
     Indication: NEUROPATHY PERIPHERAL
     Dosage: UNK
     Route: 048
  2. LYRICA [Suspect]
     Indication: FIBROMYALGIA
  3. AMARYL [Concomitant]
     Indication: DIABETES MELLITUS
     Dosage: 40 MG, 2X/DAY

REACTIONS (1)
  - Pain [Not Recovered/Not Resolved]
